FAERS Safety Report 16212285 (Version 1)
Quarter: 2019Q2

REPORT INFORMATION
  Report Type: Spontaneous
  Country: US (occurrence: US)
  Receive Date: 20190418
  Receipt Date: 20190418
  Transmission Date: 20190711
  Serious: Yes (Hospitalization, Other)
  Sender: FDA-Public Use
  Company Number: US-BAYER-2019-074448

PATIENT
  Age: 64 Year
  Sex: Male
  Weight: 108.39 kg

DRUGS (4)
  1. ALEVE [Suspect]
     Active Substance: NAPROXEN SODIUM
     Indication: PROPHYLAXIS
  2. TYVASO [Suspect]
     Active Substance: TREPROSTINIL
     Dosage: 3-9 BREATHS
     Route: 055
     Dates: start: 20170202
  3. REVATIO [Concomitant]
     Active Substance: SILDENAFIL CITRATE
  4. ALEVE [Suspect]
     Active Substance: NAPROXEN SODIUM
     Indication: PAIN
     Dosage: UNK, QD

REACTIONS (5)
  - Gastrointestinal haemorrhage [None]
  - Arthralgia [None]
  - Hypotension [None]
  - Haematemesis [None]
  - Gout [None]

NARRATIVE: CASE EVENT DATE: 2019
